FAERS Safety Report 7204328-1 (Version None)
Quarter: 2010Q4

REPORT INFORMATION
  Report Type: 
  Country: None (occurrence: None)
  Receive Date: 20101230
  Receipt Date: 20101229
  Transmission Date: 20110411
  Serious: Yes (Hospitalization)
  Sender: FDA-Public Use
  Company Number: SE-ROCHE-750661

PATIENT
  Age: 14 Year
  Sex: Female

DRUGS (3)
  1. ROCEPHALIN [Suspect]
     Route: 065
  2. AVASTIN [Suspect]
     Indication: SARCOMA
     Route: 065
     Dates: start: 20101201
  3. CELEBRA [Suspect]
     Route: 065

REACTIONS (1)
  - RENAL FAILURE [None]
